FAERS Safety Report 7287508-9 (Version None)
Quarter: 2011Q1

REPORT INFORMATION
  Report Type: 
  Country: None (occurrence: None)
  Receive Date: 20110208
  Receipt Date: 20110208
  Transmission Date: 20110831
  Serious: Yes (Disabling, Other)
  Sender: FDA-Public Use
  Company Number: None

PATIENT
  Age: 58 Year
  Sex: Female
  Weight: 64.4108 kg

DRUGS (1)
  1. IMIQUIMOB [Suspect]
     Indication: ACTINIC KERATOSIS
     Dosage: .25G SINGLE-USE PACKET 1X/DAY FOR 2 WEEKS CUTANEOUS
     Route: 003
     Dates: start: 20110112, end: 20110124

REACTIONS (10)
  - OCULAR HYPERAEMIA [None]
  - PRURITUS [None]
  - LACRIMATION INCREASED [None]
  - CONJUNCTIVITIS [None]
  - LIP SWELLING [None]
  - ABNORMAL SENSATION IN EYE [None]
  - BLISTER [None]
  - DACRYOCANALICULITIS [None]
  - HYPOPHAGIA [None]
  - VIRAL INFECTION [None]
